FAERS Safety Report 9270677 (Version 1)
Quarter: 2013Q2

REPORT INFORMATION
  Report Type: Spontaneous
  Country: GB (occurrence: GB)
  Receive Date: 20130505
  Receipt Date: 20130505
  Transmission Date: 20140414
  Serious: Yes (Hospitalization)
  Sender: FDA-Public Use
  Company Number: PHHY2013GB042953

PATIENT
  Age: 65 Year
  Sex: Male
  Weight: 70 kg

DRUGS (6)
  1. ATORVASTATIN [Suspect]
     Indication: MYOCARDIAL INFARCTION
     Dosage: 80 MG, UNK
     Route: 048
     Dates: start: 20121111
  2. RAMIPRIL [Suspect]
     Indication: MYOCARDIAL INFARCTION
     Dosage: 7.5 MG, UNK
     Route: 048
     Dates: start: 20121111
  3. PRASUGREL [Concomitant]
  4. ASPIRIN [Concomitant]
  5. AMLODIPINE [Concomitant]
  6. COENZYME Q10 [Concomitant]

REACTIONS (1)
  - Tachycardia [Not Recovered/Not Resolved]
